FAERS Safety Report 6295176-8 (Version None)
Quarter: 2009Q3

REPORT INFORMATION
  Report Type: 
  Country: None (occurrence: None)
  Receive Date: 20090803
  Receipt Date: 20090722
  Transmission Date: 20100115
  Serious: Yes (Other)
  Sender: FDA-Public Use
  Company Number: GB-ROCHE-645435

PATIENT
  Age: 43 Year
  Sex: Female

DRUGS (2)
  1. TAMIFLU [Suspect]
     Route: 065
     Dates: start: 20090715
  2. WARFARIN SODIUM [Concomitant]
     Indication: AORTIC VALVE REPLACEMENT
     Route: 065
     Dates: start: 20030101

REACTIONS (1)
  - COAGULATION TIME PROLONGED [None]
